FAERS Safety Report 7965820-5 (Version None)
Quarter: 2011Q4

REPORT INFORMATION
  Report Type: 
  Country: None (occurrence: None)
  Receive Date: 20111208
  Receipt Date: 20111205
  Transmission Date: 20120403
  Serious: Yes (Other)
  Sender: FDA-Public Use
  Company Number: US-PFIZER INC-2011296408

PATIENT
  Sex: Male

DRUGS (2)
  1. XANAX [Suspect]
     Dosage: UNK
  2. VIAGRA [Suspect]
     Dosage: UNK

REACTIONS (4)
  - IMPAIRED WORK ABILITY [None]
  - MENTAL IMPAIRMENT [None]
  - INSOMNIA [None]
  - DEPRESSION [None]
